FAERS Safety Report 17619100 (Version 2)
Quarter: 2020Q2

REPORT INFORMATION
  Report Type: Spontaneous
  Country: GB (occurrence: GB)
  Receive Date: 20200403
  Receipt Date: 20200407
  Transmission Date: 20200713
  Serious: Yes (Disabling, Other)
  Sender: FDA-Public Use
  Company Number: GB-009507513-2003GBR010906

PATIENT
  Age: 73 Year
  Sex: Female
  Weight: 65.31 kg

DRUGS (2)
  1. ALENDRONATE SODIUM. [Suspect]
     Active Substance: ALENDRONATE SODIUM
     Indication: OSTEOPENIA
     Dosage: PHARMACEUTICAL FORM: TABLET, 70 MILLIGRAM, 1 WEEK (QW)
     Route: 048
     Dates: end: 201911
  2. CALCI D [Concomitant]
     Dosage: UNK

REACTIONS (3)
  - Pruritus [Recovered/Resolved]
  - Angiopathy [Not Recovered/Not Resolved]
  - Pain in jaw [Not Recovered/Not Resolved]

NARRATIVE: CASE EVENT DATE: 201911
